FAERS Safety Report 8847797 (Version 2)
Quarter: 2012Q4

REPORT INFORMATION
  Report Type: Report from Study
  Country: US (occurrence: US)
  Receive Date: 20121018
  Receipt Date: 20121120
  Transmission Date: 20130627
  Serious: Yes (Other)
  Sender: FDA-Public Use
  Company Number: US-US-EMD SERONO, INC.-7167342

PATIENT
  Sex: Female

DRUGS (16)
  1. REBIF [Suspect]
     Indication: MULTIPLE SCLEROSIS
     Route: 058
     Dates: start: 2003, end: 2010
  2. REBIF [Suspect]
     Route: 058
     Dates: start: 20120217
  3. NORVASC [Concomitant]
     Indication: HYPERTENSION
  4. PLETAL [Concomitant]
  5. CELEXA [Concomitant]
  6. PLAVIX [Concomitant]
  7. DOXYCYCLINE [Concomitant]
  8. FENOFIBRATE [Concomitant]
  9. DIFLUCAN [Concomitant]
  10. LASIX [Concomitant]
  11. NEURONTIN [Concomitant]
  12. LOPRESSOR [Concomitant]
  13. NYSTATIN [Concomitant]
  14. OXYBUTYNIN [Concomitant]
  15. KLOR-CON [Concomitant]
  16. PENTOXIFYLLINE [Concomitant]

REACTIONS (1)
  - Diabetes mellitus [Not Recovered/Not Resolved]
